FAERS Safety Report 22645025 (Version 1)
Quarter: 2023Q2

REPORT INFORMATION
  Report Type: Report from Study
  Country: TW (occurrence: None)
  Receive Date: 20230627
  Receipt Date: 20230627
  Transmission Date: 20230721
  Serious: Yes (Other)
  Sender: FDA-Public Use
  Company Number: 2023A143573

PATIENT
  Sex: Male

DRUGS (1)
  1. IMFINZI [Suspect]
     Active Substance: DURVALUMAB
     Dosage: 600.0MG UNKNOWN
     Route: 041
     Dates: start: 20220914

REACTIONS (3)
  - Neoplasm progression [Unknown]
  - Periorbital swelling [Unknown]
  - Blood glucose increased [Unknown]
